FAERS Safety Report 6466653-1 (Version None)
Quarter: 2009Q4

REPORT INFORMATION
  Report Type: 
  Country: None (occurrence: None)
  Receive Date: 20091202
  Receipt Date: 20091120
  Transmission Date: 20100525
  Serious: Yes (Other)
  Sender: FDA-Public Use
  Company Number: GB-PFIZER INC-2009301222

PATIENT
  Age: 22 Year
  Sex: Male

DRUGS (2)
  1. VFEND [Suspect]
     Indication: FUNGAL INFECTION
     Dosage: 420 MG, 2X/DAY
     Dates: start: 20091115, end: 20091115
  2. VFEND [Suspect]
     Dosage: 280 MG, 2X/DAY
     Dates: start: 20091116, end: 20091118

REACTIONS (4)
  - HAEMATURIA [None]
  - HEPATOTOXICITY [None]
  - INJURY [None]
  - RENAL FAILURE [None]
